FAERS Safety Report 16242941 (Version 1)
Quarter: 2019Q2

REPORT INFORMATION
  Report Type: Spontaneous
  Country: US (occurrence: US)
  Receive Date: 20190426
  Receipt Date: 20190426
  Transmission Date: 20190711
  Serious: No
  Sender: FDA-Public Use
  Company Number: US-ASTRAZENECA-2019SE50956

PATIENT
  Age: 30589 Day
  Sex: Female
  Weight: 95.3 kg

DRUGS (1)
  1. BYDUREON [Suspect]
     Active Substance: EXENATIDE
     Route: 058

REACTIONS (6)
  - Circumstance or information capable of leading to medication error [Unknown]
  - Gait disturbance [Unknown]
  - Visual impairment [Unknown]
  - Device malfunction [Unknown]
  - Hypoacusis [Unknown]
  - Injection site haemorrhage [Recovered/Resolved]

NARRATIVE: CASE EVENT DATE: 20190328
